FAERS Safety Report 6195505-X (Version None)
Quarter: 2009Q2

REPORT INFORMATION
  Report Type: 
  Country: None (occurrence: None)
  Receive Date: 20090519
  Receipt Date: 20090506
  Transmission Date: 20091009
  Serious: Yes (Other)
  Sender: FDA-Public Use
  Company Number: PHHY2009ES16994

PATIENT
  Age: 42 Year
  Sex: Male

DRUGS (2)
  1. GLEEVEC [Suspect]
     Indication: CHRONIC MYELOID LEUKAEMIA
     Dosage: 400 MG/DAY
     Route: 048
     Dates: start: 20081003, end: 20090317
  2. GLEEVEC [Suspect]
     Dosage: 300 MG, UNK

REACTIONS (3)
  - FOOD POISONING [None]
  - SKIN LESION [None]
  - THROMBOCYTOPENIA [None]
